FAERS Safety Report 6255573-3 (Version None)
Quarter: 2009Q2

REPORT INFORMATION
  Report Type: 
  Country: None (occurrence: None)
  Receive Date: 20090630
  Receipt Date: 20090623
  Transmission Date: 20091009
  Serious: Yes (Other)
  Sender: FDA-Public Use
  Company Number: 2009AL004232

PATIENT
  Sex: Male

DRUGS (1)
  1. FINASTERIDE [Suspect]
     Dosage: PO
     Route: 048

REACTIONS (1)
  - PROSTATE CANCER [None]
